FAERS Safety Report 9096616 (Version 1)
Quarter: 2013Q1

REPORT INFORMATION
  Report Type: Spontaneous
  Country: BR (occurrence: None)
  Receive Date: 20130125
  Receipt Date: 20130125
  Transmission Date: 20140127
  Serious: Yes (Hospitalization, Other)
  Sender: FDA-Public Use
  Company Number: ENT 2013-0013

PATIENT
  Age: 77 Year
  Sex: Male

DRUGS (7)
  1. COMTAN [Suspect]
     Indication: PARKINSON^S DISEASE
     Route: 048
     Dates: start: 20130110
  2. ABLOK [Concomitant]
  3. VASOPRIL [Concomitant]
  4. ASPIRINA PREVENT [Concomitant]
  5. DAONIL [Concomitant]
  6. DRUG THERAPY NOS [Concomitant]
  7. LEVODOPA [Concomitant]

REACTIONS (10)
  - Hallucination [None]
  - Dyspnoea [None]
  - Choking [None]
  - Dysphagia [None]
  - Tremor [None]
  - Tongue disorder [None]
  - Anxiety [None]
  - Movement disorder [None]
  - Tension [None]
  - Muscle spasms [None]
